FAERS Safety Report 8069829-5 (Version None)
Quarter: 2012Q1

REPORT INFORMATION
  Report Type: 
  Country: None (occurrence: None)
  Receive Date: 20120125
  Receipt Date: 20120125
  Transmission Date: 20120608
  Serious: Yes (Disabling)
  Sender: FDA-Public Use
  Company Number: None

PATIENT
  Age: 84 Year
  Sex: Female
  Weight: 68.038 kg

DRUGS (1)
  1. DABIGITRAN [Suspect]
     Indication: ATRIAL FIBRILLATION
     Dates: start: 20120108, end: 20120115

REACTIONS (1)
  - GOUT [None]
